FAERS Safety Report 23577114 (Version 1)
Quarter: 2024Q1

REPORT INFORMATION
  Report Type: Spontaneous
  Country: US (occurrence: None)
  Receive Date: 20240228
  Receipt Date: 20240228
  Transmission Date: 20240410
  Serious: Yes (Life-Threatening, Hospitalization)
  Sender: FDA-Public Use
  Company Number: None

PATIENT
  Age: 26 Year
  Sex: Female

DRUGS (2)
  1. BACTRIM [Suspect]
     Active Substance: SULFAMETHOXAZOLE\TRIMETHOPRIM
     Indication: Antibiotic therapy
     Dates: start: 20151114, end: 20151118
  2. BACTRIM [Suspect]
     Active Substance: SULFAMETHOXAZOLE\TRIMETHOPRIM
     Indication: Urinary tract infection

REACTIONS (9)
  - Drug ineffective [None]
  - Pyrexia [None]
  - Condition aggravated [None]
  - Rash [None]
  - White blood cell count increased [None]
  - Hepatic enzyme increased [None]
  - Drug reaction with eosinophilia and systemic symptoms [None]
  - Ill-defined disorder [None]
  - Burning sensation [None]

NARRATIVE: CASE EVENT DATE: 20151115
